FAERS Safety Report 13186116 (Version 1)
Quarter: 2017Q1

REPORT INFORMATION
  Report Type: Spontaneous
  Country: GB (occurrence: GB)
  Receive Date: 20170204
  Receipt Date: 20170204
  Transmission Date: 20170428
  Serious: Yes (Other)
  Sender: FDA-Public Use
  Company Number: GB-BAXTER-2017BAX004511

PATIENT
  Age: 6 Decade
  Sex: Female

DRUGS (1)
  1. METRONIDAZOLE 500 MG / 100 ML INTRAVENOUS INFUSION [Suspect]
     Active Substance: METRONIDAZOLE
     Indication: INFECTION
     Dosage: COMPLETED COURSE
     Route: 065

REACTIONS (3)
  - Hallucination [Recovering/Resolving]
  - Visual impairment [Recovering/Resolving]
  - Mental disorder [Recovering/Resolving]
